FAERS Safety Report 24241507 (Version 1)
Quarter: 2024Q3

REPORT INFORMATION
  Report Type: Report from Study
  Country: FR (occurrence: FR)
  Receive Date: 20240823
  Receipt Date: 20240823
  Transmission Date: 20241016
  Serious: Yes (Hospitalization)
  Sender: SERVIER
  Company Number: FR-SERVIER-S24010239

PATIENT

DRUGS (9)
  1. PEGASPARGASE [Suspect]
     Active Substance: PEGASPARGASE
     Indication: Acute lymphocytic leukaemia
     Dosage: 2500 IU, D5 VANDA
     Route: 042
     Dates: start: 20211126
  2. DEXAMETHASONE [Suspect]
     Active Substance: DEXAMETHASONE
     Indication: Acute lymphocytic leukaemia
     Dosage: 20 MG, D1-D5
     Route: 048
     Dates: start: 20211122, end: 20211126
  3. DEXAMETHASONE [Suspect]
     Active Substance: DEXAMETHASONE
     Dosage: 10 MG, D6 VANDA
     Route: 048
     Dates: start: 20211127, end: 20211127
  4. CYTARABINE [Suspect]
     Active Substance: CYTARABINE
     Indication: Acute lymphocytic leukaemia
     Dosage: 2 MG, D1-D2
     Route: 042
     Dates: start: 20211122, end: 20211123
  5. CYTARABINE [Suspect]
     Active Substance: CYTARABINE
     Dosage: 30 MG, D05
     Route: 037
     Dates: start: 20211126, end: 20211126
  6. CYANOCOBALAMIN\PYRIDOXAMINE HYDROCHLORIDE\THIAMINE HYDROCHLORIDE [Suspect]
     Active Substance: CYANOCOBALAMIN\PYRIDOXAMINE HYDROCHLORIDE\THIAMINE HYDROCHLORIDE
     Indication: Acute lymphocytic leukaemia
     Dosage: 8 MG, D3-D4
     Route: 042
     Dates: start: 20211124, end: 20211125
  7. METHOTREXATE [Suspect]
     Active Substance: METHOTREXATE
     Indication: Acute lymphocytic leukaemia
     Dosage: 12 MG, D05
     Route: 037
     Dates: start: 20211126, end: 20211126
  8. HYDROCORTISONE [Suspect]
     Active Substance: HYDROCORTISONE\HYDROCORTISONE ACETATE
     Indication: Acute lymphocytic leukaemia
     Dosage: 15 MG, D05
     Route: 037
     Dates: start: 20211126, end: 20211126
  9. ETOPOSIDE [Suspect]
     Active Substance: ETOPOSIDE
     Indication: Acute lymphocytic leukaemia
     Dosage: 152 MG, D3-D5
     Route: 042
     Dates: start: 20211124, end: 20211126

REACTIONS (2)
  - Febrile bone marrow aplasia [Recovered/Resolved]
  - Escherichia bacteraemia [Recovered/Resolved]

NARRATIVE: CASE EVENT DATE: 20211130
